FAERS Safety Report 7626218-2 (Version None)
Quarter: 2011Q3

REPORT INFORMATION
  Report Type: 
  Country: None (occurrence: None)
  Receive Date: 20110721
  Receipt Date: 20110711
  Transmission Date: 20111222
  Serious: Yes (Hospitalization)
  Sender: FDA-Public Use
  Company Number: PHHY2011FR62540

PATIENT
  Sex: Female

DRUGS (8)
  1. CLOZAPINE [Suspect]
     Indication: PARKINSON'S DISEASE
     Dosage: UNK UKN, UNK
     Dates: end: 20110331
  2. STEROGYL [Concomitant]
     Dosage: UNK UKN, UNK
  3. NOCTAMID [Suspect]
     Dosage: UNK UKN, UNK
  4. MOVIPREP [Concomitant]
     Dosage: UNK UKN, UNK
  5. CLOZAPINE [Suspect]
     Dosage: UNK UKN, UNK
     Dates: start: 20110426
  6. LESCOL [Concomitant]
     Dosage: UNK UKN, UNK
  7. EXELON [Suspect]
     Dosage: 9.5 MG, UNK
     Route: 062
  8. ESCITALOPRAM [Suspect]
     Dosage: UNK UKN, UNK

REACTIONS (4)
  - WOUND [None]
  - ATTENTION DEFICIT/HYPERACTIVITY DISORDER [None]
  - CRANIOCEREBRAL INJURY [None]
  - FALL [None]
